FAERS Safety Report 4320287-3 (Version None)
Quarter: 2004Q1

REPORT INFORMATION
  Report Type: 
  Country: None (occurrence: None)
  Receive Date: 20040317
  Receipt Date: 20040315
  Transmission Date: 20041129
  Serious: Yes (Death, Other)
  Sender: FDA-Public Use
  Company Number: CA-SHR-03-020934

PATIENT
  Age: 73 Year
  Sex: Female
  Weight: 50 kg

DRUGS (7)
  1. FLUDARA [Suspect]
     Indication: LYMPHOMA
     Dosage: 25 MG/M2, CYCLES, INTRAVENOUS
     Route: 042
     Dates: start: 20030902, end: 20031028
  2. CYCLOPHOSPHAMIDE [Suspect]
     Indication: LYMPHOMA
     Dosage: 140 MG, CYCLES, INTRAVENOUS
     Route: 042
     Dates: start: 20030902, end: 20031028
  3. ALLOPURINOL [Suspect]
     Dates: end: 20031020
  4. IMODIUM ^JANSSEN-ORTHO^ (LOPERAMIDE HYDROCHLORIDE) [Suspect]
  5. NEUPOGEN [Suspect]
  6. BLOOD TRANSFUSION [Concomitant]
  7. AUXILIARY PRODUCTS [Concomitant]

REACTIONS (3)
  - FEELING COLD [None]
  - PANCYTOPENIA [None]
  - STEVENS-JOHNSON SYNDROME [None]
